FAERS Safety Report 9655412 (Version 2)
Quarter: 2013Q4

REPORT INFORMATION
  Report Type: Spontaneous
  Country: US (occurrence: US)
  Receive Date: 20131029
  Receipt Date: 20131029
  Transmission Date: 20140711
  Serious: Yes (Other)
  Sender: FDA-Public Use
  Company Number: US-NAPPMUNDI-USA-2012-0085825

PATIENT
  Age: 15 Year
  Sex: Male

DRUGS (1)
  1. OXYCONTIN (NDA 22-272) [Suspect]
     Indication: PAIN
     Dosage: UNK
     Route: 048
     Dates: start: 20111215, end: 201202

REACTIONS (3)
  - Drug dependence [Not Recovered/Not Resolved]
  - Mood swings [Unknown]
  - Anxiety [Unknown]
